FAERS Safety Report 12393701 (Version 1)
Quarter: 2016Q2

REPORT INFORMATION
  Report Type: Spontaneous
  Country: US (occurrence: US)
  Receive Date: 20160523
  Receipt Date: 20160523
  Transmission Date: 20160815
  Serious: No
  Sender: FDA-Public Use
  Company Number: US-BAUSCH-BL-2015-015020

PATIENT
  Age: 85 Year
  Sex: Male
  Weight: 83.08 kg

DRUGS (3)
  1. MYSOLINE [Suspect]
     Active Substance: PRIMIDONE
     Indication: ESSENTIAL TREMOR
     Route: 048
     Dates: start: 20150605
  2. CRESTOR [Concomitant]
     Active Substance: ROSUVASTATIN CALCIUM
     Indication: BLOOD CHOLESTEROL INCREASED
     Route: 048
  3. ASA [Concomitant]
     Active Substance: ASPIRIN
     Indication: PRODUCT USED FOR UNKNOWN INDICATION
     Route: 048

REACTIONS (3)
  - Tremor [Not Recovered/Not Resolved]
  - Off label use [Unknown]
  - Dizziness [Not Recovered/Not Resolved]

NARRATIVE: CASE EVENT DATE: 20150605
